FAERS Safety Report 12700540 (Version 3)
Quarter: 2017Q1

REPORT INFORMATION
  Report Type: Spontaneous
  Country: US (occurrence: US)
  Receive Date: 20160830
  Receipt Date: 20170328
  Transmission Date: 20170428
  Serious: No
  Sender: FDA-Public Use
  Company Number: US-ACTELION-A-US2016-141432

PATIENT
  Age: 79 Year
  Sex: Female
  Weight: 54.42 kg

DRUGS (3)
  1. AMLODIPINE [Concomitant]
     Active Substance: AMLODIPINE BESYLATE
  2. ORENITRAM [Concomitant]
     Active Substance: TREPROSTINIL
  3. OPSUMIT [Suspect]
     Active Substance: MACITENTAN
     Indication: PULMONARY HYPERTENSION
     Dosage: 10 MG, QD
     Route: 048
     Dates: start: 20160503

REACTIONS (8)
  - Lung infection [Unknown]
  - Skin exfoliation [Unknown]
  - Diarrhoea [Unknown]
  - Raynaud^s phenomenon [Unknown]
  - Haematocrit decreased [Unknown]
  - Headache [Unknown]
  - Anaemia [Unknown]
  - Haemoglobin decreased [Unknown]
